FAERS Safety Report 7102330-1 (Version None)
Quarter: 2010Q4

REPORT INFORMATION
  Report Type: 
  Country: None (occurrence: None)
  Receive Date: 20101115
  Receipt Date: 20101105
  Transmission Date: 20110411
  Serious: No
  Sender: FDA-Public Use
  Company Number: US-BIOGENIDEC-2010BI039205

PATIENT
  Sex: Female

DRUGS (2)
  1. TYSABRI [Suspect]
     Indication: MULTIPLE SCLEROSIS
     Route: 042
     Dates: start: 20070201, end: 20090101
  2. TYSABRI [Suspect]
     Route: 042
     Dates: start: 20090101

REACTIONS (11)
  - DIPLOPIA [None]
  - DRUG EFFECT DECREASED [None]
  - DYSPHAGIA [None]
  - HERNIA [None]
  - MUSCULOSKELETAL DISORDER [None]
  - OEDEMA PERIPHERAL [None]
  - PHOTOPSIA [None]
  - SENSORY DISTURBANCE [None]
  - VISION BLURRED [None]
  - VISUAL IMPAIRMENT [None]
  - WHITE BLOOD CELL COUNT INCREASED [None]
